FAERS Safety Report 23220972 (Version 5)
Quarter: 2025Q1

REPORT INFORMATION
  Report Type: Report from Study
  Country: US (occurrence: US)
  Receive Date: 20231123
  Receipt Date: 20250207
  Transmission Date: 20250409
  Serious: Yes (Death, Hospitalization, Other)
  Sender: HELSINN HEALTHCARE
  Company Number: US-HBP-2023US030041

PATIENT
  Age: 65 Year
  Sex: Male

DRUGS (4)
  1. VALCHLOR [Suspect]
     Active Substance: MECHLORETHAMINE
     Indication: Cutaneous T-cell lymphoma
     Dosage: THIN FILM, QD
     Route: 061
     Dates: start: 20231101, end: 202311
  2. VALCHLOR [Suspect]
     Active Substance: MECHLORETHAMINE
     Route: 061
     Dates: start: 202311, end: 202311
  3. VALCHLOR [Suspect]
     Active Substance: MECHLORETHAMINE
     Dosage: THIN FILM, QD
     Route: 061
  4. HYDROXYZINE HYDROCHLORIDE [Concomitant]
     Active Substance: HYDROXYZINE HYDROCHLORIDE

REACTIONS (5)
  - Renal failure [Fatal]
  - Hyperkalaemia [Fatal]
  - Application site erythema [Recovering/Resolving]
  - Drug effect less than expected [Unknown]
  - Dermatitis [Unknown]

NARRATIVE: CASE EVENT DATE: 20241101
